FAERS Safety Report 16929511 (Version 1)
Quarter: 2019Q4

REPORT INFORMATION
  Report Type: Spontaneous
  Country: US (occurrence: US)
  Receive Date: 20191017
  Receipt Date: 20191017
  Transmission Date: 20200122
  Serious: No
  Sender: FDA-Public Use
  Company Number: US-MYLANLABS-2019M1093486

PATIENT
  Sex: Female
  Weight: 64 kg

DRUGS (1)
  1. ESTRADIOL VAGINAL CREAM USP [Suspect]
     Active Substance: ESTRADIOL
     Indication: VULVOVAGINAL DRYNESS
     Dosage: 1 GRAM, 3XW THREE TIMES WEEK
     Route: 067
     Dates: start: 20190220, end: 2019

REACTIONS (5)
  - Application site rash [Unknown]
  - Application site reaction [Unknown]
  - Application site pain [Unknown]
  - Vulvovaginal burning sensation [Unknown]
  - Vulvovaginal discomfort [Unknown]

NARRATIVE: CASE EVENT DATE: 201902
